FAERS Safety Report 10730816 (Version 1)
Quarter: 2015Q1

REPORT INFORMATION
  Report Type: Spontaneous
  Country: US (occurrence: None)
  Receive Date: 20150112
  Receipt Date: 20150112
  Transmission Date: 20150721
  Serious: No
  Sender: FDA-Public Use
  Company Number: 1456091

PATIENT
  Age: 70 Year
  Sex: Male

DRUGS (2)
  1. GAZYVA [Suspect]
     Active Substance: OBINUTUZUMAB
     Indication: CHRONIC LYMPHOCYTIC LEUKAEMIA
  2. CHLORAMBUCIL (CHLORAMBUCIL) (TABLET) [Concomitant]
     Active Substance: CHLORAMBUCIL

REACTIONS (3)
  - Thrombocytopenia [None]
  - Platelet count decreased [None]
  - Neutrophil count decreased [None]
